FAERS Safety Report 5820285-4 (Version None)
Quarter: 2008Q3

REPORT INFORMATION
  Report Type: 
  Country: None (occurrence: None)
  Receive Date: 20080718
  Receipt Date: 20080718
  Transmission Date: 20090109
  Serious: Yes (Hospitalization)
  Sender: FDA-Public Use
  Company Number: None

PATIENT
  Sex: Female
  Weight: 54.8852 kg

DRUGS (2)
  1. CIPROFLOXACIN [Suspect]
     Indication: URINARY TRACT INFECTION
     Dosage: 250 MG BID PO
     Route: 048
     Dates: start: 20080515, end: 20080518
  2. WARFARIN SODIUM [Suspect]
     Indication: CEREBROVASCULAR ACCIDENT PROPHYLAXIS
     Dosage: 3 MG DAILY PO
     Route: 048
     Dates: start: 20050102, end: 20080518

REACTIONS (4)
  - AURICULAR SWELLING [None]
  - BLISTER [None]
  - ERYTHEMA [None]
  - OTORRHOEA [None]
